FAERS Safety Report 17778525 (Version 1)
Quarter: 2020Q2

REPORT INFORMATION
  Report Type: Spontaneous
  Country: RO (occurrence: RO)
  Receive Date: 20200514
  Receipt Date: 20200514
  Transmission Date: 20200714
  Serious: Yes (Other)
  Sender: FDA-Public Use
  Company Number: RO-ROCHE-2597296

PATIENT
  Age: 75 Year
  Sex: Male

DRUGS (9)
  1. XELODA [Suspect]
     Active Substance: CAPECITABINE
     Dosage: DAY 1-14, 1 CYCLE
     Route: 065
     Dates: start: 2020
  2. OXALIPLATIN. [Suspect]
     Active Substance: OXALIPLATIN
     Indication: RECTAL NEOPLASM
     Dosage: ADJUVANT CHEMOTHERAPY - 6 CYCLES
     Route: 065
  3. AVASTIN [Suspect]
     Active Substance: BEVACIZUMAB
     Indication: LYMPHADENOPATHY
     Dosage: FIRST-LINE TREATMENT
     Route: 065
     Dates: start: 201802, end: 201806
  4. AVASTIN [Suspect]
     Active Substance: BEVACIZUMAB
     Route: 065
     Dates: end: 2020
  5. XELODA [Suspect]
     Active Substance: CAPECITABINE
     Indication: RECTAL NEOPLASM
     Dosage: DAY 1-14 (MAINTENANCE CHEMOTHERAPY)
     Route: 065
     Dates: start: 201802, end: 201806
  6. AVASTIN [Suspect]
     Active Substance: BEVACIZUMAB
     Dosage: MAINTENANCE CHEMOTHERAPY
     Route: 065
     Dates: start: 201806, end: 2019
  7. XELODA [Suspect]
     Active Substance: CAPECITABINE
     Indication: LYMPHADENOPATHY
     Dosage: ADJUVANT CHEMOTHERAPY - 6 CYCLES
     Route: 048
  8. OXALIPLATIN. [Suspect]
     Active Substance: OXALIPLATIN
     Indication: LYMPHADENOPATHY
     Dosage: 6 CYCLES XELOX
     Route: 065
     Dates: start: 201802, end: 201806
  9. XELODA [Suspect]
     Active Substance: CAPECITABINE
     Dosage: DAY 1-14 (MAINTENANCE CHEMOTHERAPY)
     Route: 065
     Dates: start: 201806

REACTIONS (6)
  - Skin toxicity [Unknown]
  - Escherichia urinary tract infection [Unknown]
  - Proteinuria [Unknown]
  - Hypertension [Unknown]
  - Cough [Unknown]
  - Prostate cancer [Unknown]

NARRATIVE: CASE EVENT DATE: 202003
